FAERS Safety Report 8337177-1 (Version None)
Quarter: 2012Q2

REPORT INFORMATION
  Report Type: 
  Country: None (occurrence: None)
  Receive Date: 20120504
  Receipt Date: 20120427
  Transmission Date: 20120825
  Serious: Yes (Hospitalization, Other)
  Sender: FDA-Public Use
  Company Number: PHHY2011CA106329

PATIENT
  Sex: Male

DRUGS (9)
  1. AMATINE [Concomitant]
  2. SEROQUEL [Concomitant]
  3. ANTIBIOTICS [Concomitant]
  4. VALPROATE SODIUM [Concomitant]
     Dosage: 750 MG, UNK
  5. CLOZARIL [Suspect]
     Dates: start: 20100310
  6. PANTOPRAZOLE SODIUM [Concomitant]
  7. CLOZARIL [Suspect]
     Indication: SCHIZOPHRENIA
     Dosage: 375 MG, UNK
     Route: 048
     Dates: start: 20050310
  8. FLOMAX [Concomitant]
     Dosage: 0.4 MG, UNK
  9. ATROPINE [Concomitant]

REACTIONS (2)
  - DEPRESSIVE SYMPTOM [None]
  - OCULOGYRIC CRISIS [None]
